FAERS Safety Report 19611236 (Version 1)
Quarter: 2021Q3

REPORT INFORMATION
  Report Type: Spontaneous
  Country: US (occurrence: US)
  Receive Date: 20210726
  Receipt Date: 20210726
  Transmission Date: 20211014
  Serious: Yes (Hospitalization, Other)
  Sender: FDA-Public Use
  Company Number: US-ENDO PHARMACEUTICALS INC-2020-005753

PATIENT
  Sex: Male
  Weight: 81.65 kg

DRUGS (3)
  1. EDEX [Suspect]
     Active Substance: ALPROSTADIL
     Indication: ERECTILE DYSFUNCTION
     Dosage: UNK UNKNOWN, (ONCE A WEEK OR MAYBE TWICE A WEEK)
     Route: 065
  2. EDEX [Suspect]
     Active Substance: ALPROSTADIL
     Indication: ERECTILE DYSFUNCTION
     Dosage: UNK UNKNOWN, (ONCE A WEEK OR MAYBE TWICE A WEEK)
     Route: 065
  3. EDEX [Suspect]
     Active Substance: ALPROSTADIL
     Indication: ERECTILE DYSFUNCTION
     Dosage: UNK UNKNOWN, (ONCE A WEEK OR MAYBE TWICE A WEEK)
     Route: 065

REACTIONS (2)
  - Accidental overdose [Recovered/Resolved]
  - Priapism [Unknown]
